FAERS Safety Report 16470674 (Version 4)
Quarter: 2019Q4

REPORT INFORMATION
  Report Type: Spontaneous
  Country: US (occurrence: US)
  Receive Date: 20190624
  Receipt Date: 20191127
  Transmission Date: 20200122
  Serious: Yes (Hospitalization)
  Sender: FDA-Public Use
  Company Number: US-CATALYST PHARMACEUTICALS, INC-2019CAT00047

PATIENT
  Age: 89 Year
  Sex: Female
  Weight: 56.69 kg

DRUGS (13)
  1. FIRDAPSE [Suspect]
     Active Substance: AMIFAMPRIDINE
     Dosage: 10 MG, 3X/DAY (AT 2:00AM, 8:00AM, AND 11:00AM)
     Route: 048
     Dates: start: 2019, end: 201906
  2. FIRDAPSE [Suspect]
     Active Substance: AMIFAMPRIDINE
     Dosage: 20 MG, 1X/DAY (9:00PM)
     Route: 048
     Dates: start: 2019, end: 201906
  3. FIRDAPSE [Suspect]
     Active Substance: AMIFAMPRIDINE
     Dosage: 15 MG, 2X/DAY (1:00PM AND 4:00PM)
     Route: 048
     Dates: start: 2019, end: 2019
  4. FIRDAPSE [Suspect]
     Active Substance: AMIFAMPRIDINE
     Dosage: 15 MG, 2X/DAY (1:00PM AND 4:00PM)
     Route: 048
     Dates: start: 2019, end: 201906
  5. FIRDAPSE [Suspect]
     Active Substance: AMIFAMPRIDINE
     Dosage: 10 MG, 3X/DAY (AT 2:00AM, 8:00AM, AND 11:00AM)
     Route: 048
     Dates: start: 20190617
  6. FIRDAPSE [Suspect]
     Active Substance: AMIFAMPRIDINE
     Dosage: 20 MG, 1X/DAY (9:00PM)
     Route: 048
     Dates: start: 20190617
  7. FIRDAPSE [Suspect]
     Active Substance: AMIFAMPRIDINE
     Dosage: 10 MG, 3X/DAY (AT 2:00AM, 8:00AM, AND 11:00AM)
     Route: 048
     Dates: start: 20190616, end: 20190617
  8. FIRDAPSE [Suspect]
     Active Substance: AMIFAMPRIDINE
     Dosage: 15 MG, 2X/DAY (1:00PM AND 4:00PM)
     Route: 048
     Dates: start: 20190617
  9. UNSPECIFIED OTHER MEDICATIONS [Concomitant]
     Active Substance: UNSPECIFIED INGREDIENT
  10. FIRDAPSE [Suspect]
     Active Substance: AMIFAMPRIDINE
     Dosage: 20 MG, 1X/DAY (9:00PM)
     Route: 048
     Dates: start: 2019, end: 2019
  11. FIRDAPSE [Suspect]
     Active Substance: AMIFAMPRIDINE
     Dosage: 20 MG, 1X/DAY (9:00PM)
     Route: 048
     Dates: start: 20190616, end: 20190617
  12. FIRDAPSE [Suspect]
     Active Substance: AMIFAMPRIDINE
     Indication: MYASTHENIC SYNDROME
     Dosage: 10 MG, 3X/DAY (AT 2:00AM, 8:00AM, AND 11:00AM)
     Route: 048
     Dates: start: 2019, end: 2019
  13. FIRDAPSE [Suspect]
     Active Substance: AMIFAMPRIDINE
     Dosage: 15 MG, 2X/DAY (1:00PM AND 4:00PM)
     Route: 048
     Dates: start: 20190616, end: 20190617

REACTIONS (13)
  - Abdominal discomfort [Not Recovered/Not Resolved]
  - Urinary tract infection [Unknown]
  - Paralysis [Recovering/Resolving]
  - Device occlusion [Recovered/Resolved]
  - Aphasia [Recovering/Resolving]
  - Depressed level of consciousness [Recovering/Resolving]
  - Nausea [Not Recovered/Not Resolved]
  - Off label use [Not Recovered/Not Resolved]
  - Intestinal obstruction [Recovering/Resolving]
  - Acute kidney injury [Unknown]
  - Product dose omission [Recovered/Resolved]
  - Sepsis [Unknown]
  - Asthenia [Not Recovered/Not Resolved]

NARRATIVE: CASE EVENT DATE: 2019
